APPROVED DRUG PRODUCT: ACYCLOVIR
Active Ingredient: ACYCLOVIR
Strength: 5%
Dosage Form/Route: OINTMENT;TOPICAL
Application: A202459 | Product #001 | TE Code: AB
Applicant: PHARMOBEDIENT CONSULTING LLC
Approved: Apr 3, 2013 | RLD: No | RS: No | Type: RX